FAERS Safety Report 6677274-X (Version None)
Quarter: 2010Q2

REPORT INFORMATION
  Report Type: 
  Country: None (occurrence: None)
  Receive Date: 20100408
  Receipt Date: 20100408
  Transmission Date: 20101027
  Serious: Yes (Other)
  Sender: FDA-Public Use
  Company Number: None

PATIENT
  Age: 7 Year
  Sex: Female
  Weight: 27.6 kg

DRUGS (1)
  1. GENERIC ZARONTIN [Suspect]
     Indication: EPILEPSY
     Dosage: 250MG/5ML - 7ML AM 8ML PM
     Dates: start: 20090801, end: 20091101

REACTIONS (3)
  - ABDOMINAL PAIN UPPER [None]
  - DRUG INTOLERANCE [None]
  - VOMITING [None]
